FAERS Safety Report 8896277 (Version 1)
Quarter: 2012Q4

REPORT INFORMATION
  Report Type: Spontaneous
  Country: US (occurrence: None)
  Receive Date: 20121106
  Receipt Date: 20121106
  Transmission Date: 20130627
  Serious: Yes (Life-Threatening, Hospitalization, Other)
  Sender: FDA-Public Use
  Company Number: None

PATIENT
  Age: 53 Year
  Sex: Male
  Weight: 86.7 kg

DRUGS (7)
  1. TICAGRELOR [Suspect]
     Indication: CARDIAC CATHETERISATION
     Dosage: 180 mg once po
     Route: 048
     Dates: start: 20120821, end: 20120821
  2. TICAGRELOR [Suspect]
     Indication: POST PROCEDURAL COMPLICATION
     Dosage: 180 mg once po
     Route: 048
     Dates: start: 20120821, end: 20120821
  3. TICAGRELOR [Suspect]
     Indication: PROPHYLAXIS
     Dosage: 180 mg once po
     Route: 048
     Dates: start: 20120821, end: 20120821
  4. TICAGRELOR [Suspect]
     Indication: CARDIAC CATHETERISATION
     Dosage: 90 mg BID po
     Route: 048
  5. TICAGRELOR [Suspect]
     Indication: POST PROCEDURAL COMPLICATION
     Dosage: 90 mg BID po
     Route: 048
  6. TICAGRELOR [Suspect]
     Indication: PROPHYLAXIS
     Dosage: 90 mg BID po
     Route: 048
  7. ENOXAPARIN [Concomitant]

REACTIONS (2)
  - Intraventricular haemorrhage [None]
  - Hydrocephalus [None]
